FAERS Safety Report 17134453 (Version 1)
Quarter: 2019Q4

REPORT INFORMATION
  Report Type: Spontaneous
  Country: US (occurrence: US)
  Receive Date: 20191210
  Receipt Date: 20191210
  Transmission Date: 20200122
  Serious: Yes (Other)
  Sender: FDA-Public Use
  Company Number: US-SHILPA MEDICARE LIMITED-SML-US-2019-00273

PATIENT

DRUGS (3)
  1. CAPECITABINE, UNKNOWN [Suspect]
     Active Substance: CAPECITABINE
     Indication: COLON CANCER
     Dosage: CYCLE 01
     Route: 048
     Dates: start: 20190503
  2. CAPECITABINE, UNKNOWN [Suspect]
     Active Substance: CAPECITABINE
     Dosage: CYCLE 02 AND 03
     Route: 048
  3. CAPECITABINE, UNKNOWN [Suspect]
     Active Substance: CAPECITABINE
     Dosage: FROM CYCLE 04 TO 08
     Route: 048

REACTIONS (16)
  - Paraesthesia [Recovering/Resolving]
  - Decreased appetite [Unknown]
  - Pyrexia [Unknown]
  - Erythema [Recovering/Resolving]
  - Dry eye [Unknown]
  - Pain in extremity [Recovering/Resolving]
  - Asthenia [Unknown]
  - Fatigue [Unknown]
  - Rhinitis [Unknown]
  - Gastrointestinal disorder [Unknown]
  - Nausea [Recovered/Resolved]
  - Palmar-plantar erythrodysaesthesia syndrome [Recovering/Resolving]
  - Blister [Recovering/Resolving]
  - Parosmia [Unknown]
  - Malaise [Unknown]
  - Mouth ulceration [Unknown]
